FAERS Safety Report 14859877 (Version 1)
Quarter: 2018Q2

REPORT INFORMATION
  Report Type: Spontaneous
  Country: FR (occurrence: FR)
  Receive Date: 20180508
  Receipt Date: 20180508
  Transmission Date: 20180711
  Serious: Yes (Other)
  Sender: FDA-Public Use
  Company Number: FR-MERCK KGAA-2047393

PATIENT
  Age: 56 Year
  Sex: Female
  Weight: 98 kg

DRUGS (3)
  1. NOVOTHYROX [Suspect]
     Active Substance: LEVOTHYROXINE SODIUM
     Indication: HYPOTHYROIDISM
  2. INEXIUM [Concomitant]
     Active Substance: ESOMEPRAZOLE
  3. PROGESTAN [Concomitant]
     Active Substance: PROGESTERONE

REACTIONS (24)
  - Disturbance in attention [None]
  - Amnesia [None]
  - Social avoidant behaviour [None]
  - Impaired work ability [None]
  - Blood thyroid stimulating hormone increased [Recovered/Resolved]
  - Tri-iodothyronine free decreased [Recovered/Resolved]
  - Sleep disorder [None]
  - Loss of personal independence in daily activities [None]
  - Social problem [None]
  - Asthenia [Recovering/Resolving]
  - Alopecia [None]
  - Fatigue [None]
  - Anxiety [None]
  - Dyspnoea [Recovering/Resolving]
  - Muscle spasms [None]
  - Angina pectoris [Recovering/Resolving]
  - Vertigo [None]
  - Headache [None]
  - Weight increased [Recovering/Resolving]
  - Blood creatinine increased [None]
  - General physical health deterioration [Recovered/Resolved]
  - Arthralgia [None]
  - Malaise [None]
  - Urine output increased [None]

NARRATIVE: CASE EVENT DATE: 20170905
